FAERS Safety Report 5623460-7 (Version None)
Quarter: 2008Q1

REPORT INFORMATION
  Report Type: 
  Country: None (occurrence: None)
  Receive Date: 20080212
  Receipt Date: 20080131
  Transmission Date: 20080703
  Serious: Yes (Other)
  Sender: FDA-Public Use
  Company Number: FR-ELI_LILLY_AND_COMPANY-FR200712003503

PATIENT
  Age: 83 Year
  Sex: Female
  Weight: 71 kg

DRUGS (10)
  1. PROZAC [Suspect]
     Indication: DEPRESSION
     Dosage: 20 MG, AS NEEDED
     Route: 048
     Dates: start: 19880101
  2. CORTANCYL [Concomitant]
     Indication: TEMPORAL ARTERITIS
     Dosage: 8 MG, DAILY (1/D)
     Route: 048
  3. KARDEGIC [Concomitant]
     Indication: HYPERTENSION
     Dosage: 1 D/F, DAILY (1/D)
     Route: 048
  4. FLECTOR [Concomitant]
     Route: 065
  5. TAHOR [Concomitant]
     Indication: HYPERTENSION
     Dosage: 1 D/F, DAILY (1/D)
     Route: 048
  6. COZAAR [Concomitant]
     Indication: HYPERTENSION
     Route: 065
  7. LEVOTHYROX [Concomitant]
     Indication: HYPOTHYROIDISM
     Dosage: 1.5 D/F, DAILY (1/D)
     Route: 048
  8. MOPRAL [Concomitant]
     Route: 065
  9. HYZAAR [Concomitant]
     Indication: HYPERTENSION
     Dosage: 1 D/F, DAILY (1/D)
     Route: 048
     Dates: start: 20030601
  10. CELECTOL [Concomitant]
     Indication: CORONARY ARTERY DISEASE
     Dosage: 0.5 D/F, 2/D
     Route: 048

REACTIONS (4)
  - DYSPNOEA EXERTIONAL [None]
  - INTERSTITIAL LUNG DISEASE [None]
  - PULMONARY HYPERTENSION [None]
  - SLEEP APNOEA SYNDROME [None]
